FAERS Safety Report 23055459 (Version 1)
Quarter: 2023Q4

REPORT INFORMATION
  Report Type: Spontaneous
  Country: IR (occurrence: IR)
  Receive Date: 20231011
  Receipt Date: 20231011
  Transmission Date: 20240110
  Serious: Yes (Other)
  Sender: FDA-Public Use
  Company Number: IR-CMP PHARMA-2023CMP00046

PATIENT
  Age: 32 Year
  Sex: Male

DRUGS (1)
  1. SILDENAFIL CITRATE [Suspect]
     Active Substance: SILDENAFIL CITRATE
     Dosage: 100 MG
     Route: 048

REACTIONS (5)
  - Retinal vein occlusion [Recovering/Resolving]
  - Retinal artery occlusion [Recovering/Resolving]
  - Optic ischaemic neuropathy [Not Recovered/Not Resolved]
  - Retinal haemorrhage [Not Recovered/Not Resolved]
  - Retinal detachment [Not Recovered/Not Resolved]
